FAERS Safety Report 4805736-6 (Version None)
Quarter: 2005Q4

REPORT INFORMATION
  Report Type: 
  Country: None (occurrence: None)
  Receive Date: 20051017
  Receipt Date: 20050929
  Transmission Date: 20060501
  Serious: Yes (Hospitalization)
  Sender: FDA-Public Use
  Company Number: 2005S1009598

PATIENT
  Age: 92 Year
  Sex: Female
  Weight: 57.1532 kg

DRUGS (7)
  1. FENTANYL [Suspect]
     Indication: ARTHRITIS
     Dosage: 50 MCG/HR; Q3D; TDER
     Route: 062
     Dates: start: 20050720
  2. DOCUSATE SODIUM [Concomitant]
  3. LISINOPRIL [Concomitant]
  4. PANTOPRAZOLE [Concomitant]
  5. LEVOTHYROXINE [Concomitant]
  6. HYDRALAZINE [Concomitant]
  7. ESCITALOPRAM OXALATE [Concomitant]

REACTIONS (4)
  - CONFUSIONAL STATE [None]
  - DIZZINESS [None]
  - FALL [None]
  - SPINAL COMPRESSION FRACTURE [None]
